FAERS Safety Report 9895885 (Version 1)
Quarter: 2014Q1

REPORT INFORMATION
  Report Type: Spontaneous
  Country: US (occurrence: US)
  Receive Date: 20140213
  Receipt Date: 20140213
  Transmission Date: 20141002
  Serious: No
  Sender: FDA-Public Use
  Company Number: US-BRISTOL-MYERS SQUIBB COMPANY-17301011

PATIENT
  Age: 59 Year
  Sex: Male
  Weight: 102.04 kg

DRUGS (9)
  1. ABATACEPT SUBQ INJECTION 125MG/ML [Suspect]
     Route: 058
  2. METHOTREXATE [Concomitant]
     Dosage: TAB
  3. PIROXICAM [Concomitant]
     Dosage: CAPS
  4. FOLIC ACID [Concomitant]
     Dosage: TAB
  5. SKELAXIN [Concomitant]
     Dosage: TAB
  6. LEVOTHROID [Concomitant]
     Dosage: TAB
  7. FISH OIL [Concomitant]
     Dosage: CAP
  8. NORCO [Concomitant]
     Dosage: 1DF=10-325MG
  9. BIOTIN [Concomitant]
     Dosage: CAP

REACTIONS (1)
  - Rash [Unknown]
